FAERS Safety Report 16702972 (Version 1)
Quarter: 2019Q3

REPORT INFORMATION
  Report Type: Report from Study
  Country: None (occurrence: BR)
  Receive Date: 20190814
  Receipt Date: 20190814
  Transmission Date: 20191004
  Serious: Yes (Other)
  Sender: FDA-Public Use
  Company Number: BR-ABBVIE-18P-020-2474653-00

PATIENT
  Age: 37 Year
  Sex: Female

DRUGS (2)
  1. SYNTHROID [Suspect]
     Active Substance: LEVOTHYROXINE SODIUM
     Indication: PRODUCT USED FOR UNKNOWN INDICATION
     Dosage: TAKEN SYNTHROID FOR ONE OR TWO MONTHS ONLY, IN THE EARLY PREGNANCY.
     Route: 048
  2. GLIFAGE [Concomitant]
     Active Substance: METFORMIN HYDROCHLORIDE
     Indication: BLOOD GLUCOSE ABNORMAL

REACTIONS (4)
  - Caesarean section [Unknown]
  - Exposure during pregnancy [Unknown]
  - Live birth [Unknown]
  - Mammoplasty [Unknown]

NARRATIVE: CASE EVENT DATE: 20181123
